FAERS Safety Report 16989609 (Version 1)
Quarter: 2019Q4

REPORT INFORMATION
  Report Type: Spontaneous
  Country: US (occurrence: US)
  Receive Date: 20191104
  Receipt Date: 20191104
  Transmission Date: 20200122
  Serious: Yes (Other)
  Sender: FDA-Public Use
  Company Number: US-PROCTER_AND_GAMBLE-GS19115802

PATIENT
  Age: 45 Year
  Sex: Female

DRUGS (1)
  1. METAMUCIL [Suspect]
     Active Substance: PLANTAGO SEED
     Indication: CONSTIPATION
     Dosage: USED 2 TIMES-UNKNOWN-JUST SHOOK SOME POWDER INTO GLASS OF WATER
     Route: 048

REACTIONS (4)
  - Wrong technique in product usage process [Unknown]
  - Throat tightness [Recovered/Resolved]
  - Throat irritation [Recovered/Resolved]
  - Hypersensitivity [Unknown]
